FAERS Safety Report 14106336 (Version 2)
Quarter: 2017Q4

REPORT INFORMATION
  Report Type: Report from Study
  Country: US (occurrence: US)
  Receive Date: 20171019
  Receipt Date: 20171130
  Transmission Date: 20180321
  Serious: Yes (Hospitalization, Other)
  Sender: FDA-Public Use
  Company Number: US-SHIRE-US201722361

PATIENT
  Age: 83 Year
  Sex: Male

DRUGS (2)
  1. VPRIV [Suspect]
     Active Substance: VELAGLUCERASE ALFA
     Indication: GAUCHER^S DISEASE TYPE I
     Dosage: 13 VIALS, 2X A WEEK
     Route: 042
     Dates: start: 20100520
  2. VPRIV [Suspect]
     Active Substance: VELAGLUCERASE ALFA
     Dosage: 60 MG/KG, 2X A MONTH
     Route: 042

REACTIONS (2)
  - Carotid artery occlusion [Unknown]
  - Cerebrovascular accident [Recovered/Resolved]

NARRATIVE: CASE EVENT DATE: 20170828
